FAERS Safety Report 8157100-2 (Version None)
Quarter: 2012Q1

REPORT INFORMATION
  Report Type: 
  Country: None (occurrence: None)
  Receive Date: 20120222
  Receipt Date: 20120215
  Transmission Date: 20120608
  Serious: Yes (Hospitalization)
  Sender: FDA-Public Use
  Company Number: FR-ABBOTT-12P-056-0904978-00

PATIENT
  Sex: Female

DRUGS (3)
  1. HUMIRA [Suspect]
     Indication: PSORIATIC ARTHROPATHY
     Route: 058
     Dates: start: 20110411, end: 20110518
  2. NICARDIPINE HCL [Suspect]
     Indication: HYPERTENSION
  3. LANTUS [Suspect]
     Indication: DIABETES MELLITUS
     Route: 058

REACTIONS (6)
  - HYPERCALCAEMIA [None]
  - PAIN [None]
  - AZOTAEMIA [None]
  - BLOOD PHOSPHORUS INCREASED [None]
  - RENAL FAILURE [None]
  - FATIGUE [None]
